FAERS Safety Report 7281406-2 (Version None)
Quarter: 2011Q1

REPORT INFORMATION
  Report Type: 
  Country: None (occurrence: None)
  Receive Date: 20110208
  Receipt Date: 20110126
  Transmission Date: 20110831
  Serious: No
  Sender: FDA-Public Use
  Company Number: DE-ELI_LILLY_AND_COMPANY-DE201101006942

PATIENT
  Age: 67 Year
  Sex: Male

DRUGS (8)
  1. CIALIS [Suspect]
     Indication: ERECTILE DYSFUNCTION
     Dosage: 5 MG, UNK
     Route: 048
     Dates: start: 20110115
  2. JODID [Concomitant]
  3. BISOPROLOL [Concomitant]
  4. FELODIPINE [Concomitant]
  5. ALLOPURINOL [Concomitant]
  6. LEVOTHYROXINE SODIUM [Concomitant]
  7. SIMVASTATIN [Concomitant]
  8. LISINOPRIL [Concomitant]

REACTIONS (3)
  - VISION BLURRED [None]
  - OCULAR HYPERAEMIA [None]
  - HEADACHE [None]
